FAERS Safety Report 18612092 (Version 1)
Quarter: 2020Q4

REPORT INFORMATION
  Report Type: Spontaneous
  Country: US (occurrence: US)
  Receive Date: 20201214
  Receipt Date: 20201214
  Transmission Date: 20210114
  Serious: Yes (Death, Hospitalization)
  Sender: FDA-Public Use
  Company Number: None

PATIENT
  Age: 87 Year
  Sex: Male
  Weight: 106.6 kg

DRUGS (12)
  1. VANCOMYCIN [Concomitant]
     Active Substance: VANCOMYCIN
     Dates: start: 20201213, end: 20201214
  2. CEFEPIME [Concomitant]
     Active Substance: CEFEPIME HYDROCHLORIDE
     Dates: start: 20201213, end: 20201214
  3. RASAGALINE 1MG DAILY [Concomitant]
     Dates: start: 20201206, end: 20201214
  4. METOPROLOL TARTARATE 25MG BID [Concomitant]
     Dates: start: 20201214, end: 20201214
  5. AMIODARONE GTT [Concomitant]
     Dates: start: 20201212, end: 20201214
  6. CARBIDOPA/LEVODOPA 25/100 1TAB 5X PER DAY [Concomitant]
     Dates: start: 20201211, end: 20201214
  7. DILTIAZEM 125MG/125ML D5W [Concomitant]
     Dates: start: 20201208, end: 20201214
  8. DILTIAZEM 60MG ER HS [Concomitant]
     Dates: start: 20201209, end: 20201214
  9. BAMLANIVIMAB. [Suspect]
     Active Substance: BAMLANIVIMAB
     Indication: COVID-19
     Dosage: ?          OTHER FREQUENCY:ONCE;?
     Route: 041
     Dates: start: 20201205, end: 20201205
  10. ROPINIROLE 0.25MG (2X TID) [Concomitant]
     Dates: start: 20201210, end: 20201214
  11. DILTIAZEM 120MG CD (X2) [Concomitant]
     Dates: start: 20201211, end: 20201214
  12. ENOXAPARIN 40MG BID [Concomitant]
     Dates: start: 20201210, end: 20201214

REACTIONS (2)
  - Pneumonia [None]
  - Dehydration [None]

NARRATIVE: CASE EVENT DATE: 20201205
